FAERS Safety Report 22047799 (Version 1)
Quarter: 2023Q1

REPORT INFORMATION
  Report Type: Spontaneous
  Country: BT (occurrence: BT)
  Receive Date: 20230301
  Receipt Date: 20230301
  Transmission Date: 20230417
  Serious: No
  Sender: FDA-Public Use
  Company Number: BT-ALKEM LABORATORIES LIMITED-BT-ALKEM-2022-03448

PATIENT
  Age: 21 Year
  Sex: Male

DRUGS (1)
  1. LANSOPRAZOLE [Suspect]
     Active Substance: LANSOPRAZOLE
     Indication: Product used for unknown indication
     Dosage: 15 MILLIGRAM DAILY
     Route: 065

REACTIONS (1)
  - Galactorrhoea [Unknown]
